FAERS Safety Report 6416079-1 (Version None)
Quarter: 2009Q4

REPORT INFORMATION
  Report Type: 
  Country: None (occurrence: None)
  Receive Date: 20091023
  Receipt Date: 20091012
  Transmission Date: 20100525
  Serious: Yes (Other)
  Sender: FDA-Public Use
  Company Number: JPI-P-008830

PATIENT
  Age: 27 Year
  Sex: Female

DRUGS (2)
  1. XYREM [Suspect]
     Indication: NARCOLEPSY
     Dosage: 6 GM (3 GM, 2 IN 1 D), ORAL : 9 GM (4.5 GM, 2 IN 1 D), ORAL
     Route: 048
     Dates: start: 20080124
  2. XYREM [Suspect]
     Indication: NARCOLEPSY
     Dosage: 6 GM (3 GM, 2 IN 1 D), ORAL : 9 GM (4.5 GM, 2 IN 1 D), ORAL
     Route: 048
     Dates: start: 20090616

REACTIONS (1)
  - GALLBLADDER OPERATION [None]
